FAERS Safety Report 10428623 (Version 3)
Quarter: 2015Q1

REPORT INFORMATION
  Report Type: Spontaneous
  Country: GB (occurrence: GB)
  Receive Date: 20140829
  Receipt Date: 20150305
  Transmission Date: 20150720
  Serious: Yes (Other)
  Sender: FDA-Public Use
  Company Number: GB-ALKEM-000690

PATIENT
  Sex: Female

DRUGS (5)
  1. SINEMET [Suspect]
     Active Substance: CARBIDOPA\LEVODOPA
     Indication: PRODUCT USED FOR UNKNOWN INDICATION
  2. COMTESS [Suspect]
     Active Substance: ENTACAPONE
     Indication: PARKINSON^S DISEASE
     Dosage: PATIENT TOOK FROM AN UNKNOWN DATE IN OCT OR NOV-2012.
     Dates: start: 2012
  3. RASAGILINE/RASAGILINE MESYLATE [Suspect]
     Active Substance: RASAGILINE MESYLATE
     Indication: PRODUCT USED FOR UNKNOWN INDICATION
     Dates: start: 201406
  4. QUETIAPINE/QUETIAPINE FUMARATE [Suspect]
     Active Substance: QUETIAPINE FUMARATE
     Indication: PRODUCT USED FOR UNKNOWN INDICATION
     Dates: start: 201406
  5. PRAMIPEXOLE/PRAMIPEXOLE DIHYDROCHLORIDE [Suspect]
     Active Substance: PRAMIPEXOLE DIHYDROCHLORIDE
     Indication: PRODUCT USED FOR UNKNOWN INDICATION
     Dates: start: 201406

REACTIONS (16)
  - Uterine prolapse [Unknown]
  - Back pain [Not Recovered/Not Resolved]
  - Somnolence [Not Recovered/Not Resolved]
  - Disturbance in attention [Not Recovered/Not Resolved]
  - Dyskinesia [Not Recovered/Not Resolved]
  - Myalgia [Not Recovered/Not Resolved]
  - Defaecation urgency [Not Recovered/Not Resolved]
  - Palpitations [Not Recovered/Not Resolved]
  - Head discomfort [Not Recovered/Not Resolved]
  - Agitation [Not Recovered/Not Resolved]
  - Muscle twitching [Not Recovered/Not Resolved]
  - Abdominal pain [Not Recovered/Not Resolved]
  - Trismus [Not Recovered/Not Resolved]
  - Feeling abnormal [Not Recovered/Not Resolved]
  - Malaise [Not Recovered/Not Resolved]
  - Benign neoplasm of adrenal gland [Not Recovered/Not Resolved]
